FAERS Safety Report 6807020-8 (Version None)
Quarter: 2010Q2

REPORT INFORMATION
  Report Type: 
  Country: None (occurrence: None)
  Receive Date: 20100628
  Receipt Date: 20100628
  Transmission Date: 20101027
  Serious: No
  Sender: FDA-Public Use
  Company Number: None

PATIENT
  Sex: Male
  Weight: 98.6 kg

DRUGS (3)
  1. CARBOPLATIN [Suspect]
     Dosage: 880 MG
     Dates: end: 20100513
  2. ERBITUX [Suspect]
     Dosage: 2020 MG
     Dates: end: 20100527
  3. TAXOL [Suspect]
     Dosage: 450 MG
     Dates: end: 20100513

REACTIONS (3)
  - NEUROPATHY PERIPHERAL [None]
  - NEUTROPHIL COUNT DECREASED [None]
  - WHITE BLOOD CELL COUNT DECREASED [None]
